FAERS Safety Report 5857690-6 (Version None)
Quarter: 2008Q3

REPORT INFORMATION
  Report Type: 
  Country: None (occurrence: None)
  Receive Date: 20080826
  Receipt Date: 20080429
  Transmission Date: 20090109
  Serious: No
  Sender: FDA-Public Use
  Company Number: US-BAYER-200822084NA

PATIENT
  Age: 31 Year
  Sex: Female
  Weight: 82 kg

DRUGS (2)
  1. YASMIN [Suspect]
     Indication: CONTRACEPTION
     Route: 048
     Dates: start: 20070301
  2. VITAMIN TAB [Concomitant]

REACTIONS (2)
  - ALOPECIA [None]
  - NO ADVERSE EVENT [None]
